FAERS Safety Report 8545988-2 (Version None)
Quarter: 2012Q3

REPORT INFORMATION
  Report Type: 
  Country: None (occurrence: None)
  Receive Date: 20120727
  Receipt Date: 20111128
  Transmission Date: 20120928
  Serious: No
  Sender: FDA-Public Use
  Company Number: US-ASTRAZENECA-2011SE72501

PATIENT
  Age: 68 Year
  Sex: Male

DRUGS (3)
  1. ANTI PSYCHOTIC [Concomitant]
  2. SEROQUEL [Suspect]
     Indication: SCHIZOPHRENIA, PARANOID TYPE
     Route: 048
  3. TRAZODONE HCL [Concomitant]

REACTIONS (2)
  - AGITATION [None]
  - DRUG DOSE OMISSION [None]
